FAERS Safety Report 16697022 (Version 3)
Quarter: 2019Q4

REPORT INFORMATION
  Report Type: Spontaneous
  Country: JP (occurrence: JP)
  Receive Date: 20190813
  Receipt Date: 20191003
  Transmission Date: 20200122
  Serious: Yes (Death, Other)
  Sender: FDA-Public Use
  Company Number: JP-AMGEN-JPNSP2019128155

PATIENT
  Age: 81 Year
  Sex: Female
  Weight: 42 kg

DRUGS (8)
  1. NAPAGELN [Concomitant]
     Active Substance: FELBINAC
     Dosage: SEVERAL TIMES A DAY
     Dates: start: 201809, end: 201904
  2. MAALOX [ALUMINIUM HYDROXIDE;MAGNESIUM HYDROXIDE] [Concomitant]
     Dosage: 2.4 GRAM, BID
     Dates: start: 201809, end: 201904
  3. EVENITY [Suspect]
     Active Substance: ROMOSOZUMAB-AQQG
     Indication: PRODUCT USED FOR UNKNOWN INDICATION
     Dosage: 210 MILLIGRAM
     Route: 058
     Dates: start: 20190424
  4. STRONG RESTAMIN CORTISONE [Concomitant]
     Dosage: SEVERAL TIMES A DAY
     Dates: start: 201809, end: 201904
  5. CYMBALTA [Concomitant]
     Active Substance: DULOXETINE HYDROCHLORIDE
     Dosage: UNK
     Route: 065
     Dates: start: 201809, end: 201904
  6. ALLEGRA [Concomitant]
     Active Substance: FEXOFENADINE HYDROCHLORIDE
     Dosage: UNK
     Route: 065
     Dates: start: 201809, end: 201904
  7. BAKTAR [Concomitant]
     Active Substance: SULFAMETHOXAZOLE\TRIMETHOPRIM
     Dosage: UNK UNK, BID, 2 TABLETS
     Dates: start: 201809, end: 201904
  8. SELTOUCH [Concomitant]
     Active Substance: FELBINAC
     Dosage: UNK UNK, QD, 1 SHEET
     Dates: start: 201809, end: 201904

REACTIONS (1)
  - Cardiac arrest [Fatal]

NARRATIVE: CASE EVENT DATE: 2019
